FAERS Safety Report 21933679 (Version 4)
Quarter: 2023Q4

REPORT INFORMATION
  Report Type: Spontaneous
  Country: US (occurrence: US)
  Receive Date: 20230201
  Receipt Date: 20231107
  Transmission Date: 20240110
  Serious: No
  Sender: FDA-Public Use
  Company Number: US-BRISTOL-MYERS SQUIBB COMPANY-2023-014561

PATIENT
  Age: 67 Year
  Sex: Female

DRUGS (2)
  1. POMALYST [Suspect]
     Active Substance: POMALIDOMIDE
     Indication: Plasma cell myeloma
     Dosage: FREQUENCY: 1 CAPSULE (4MG TOTAL) BY MOUTH EVERY DAY WITHOUT FOOD ON DAYS 1-21 OF 28 DAY CYCLE
     Route: 048
     Dates: start: 20211124
  2. POMALYST [Suspect]
     Active Substance: POMALIDOMIDE
     Indication: Migraine

REACTIONS (6)
  - Muscle spasms [Recovered/Resolved]
  - Migraine [Recovered/Resolved]
  - Diarrhoea [Not Recovered/Not Resolved]
  - Fatigue [Not Recovered/Not Resolved]
  - Somnolence [Not Recovered/Not Resolved]
  - Decreased activity [Not Recovered/Not Resolved]
